FAERS Safety Report 15859969 (Version 1)
Quarter: 2019Q1

REPORT INFORMATION
  Report Type: Spontaneous
  Country: ES (occurrence: ES)
  Receive Date: 20190123
  Receipt Date: 20190123
  Transmission Date: 20190417
  Serious: Yes (Death)
  Sender: FDA-Public Use
  Company Number: ES-MYLANLABS-2019M1005554

PATIENT
  Age: 95 Year
  Sex: Female

DRUGS (4)
  1. AMERIDE                            /00206601/ [Suspect]
     Active Substance: AMILORIDE HYDROCHLORIDE\HYDROCHLOROTHIAZIDE
     Indication: PRODUCT USED FOR UNKNOWN INDICATION
     Dosage: UNK UNK, QD, 1-0-0
     Route: 048
     Dates: start: 20130911, end: 20171213
  2. BISOPROLOL [Suspect]
     Active Substance: BISOPROLOL
     Indication: PRODUCT USED FOR UNKNOWN INDICATION
     Dosage: 5 MILLIGRAM, 5 MG DIA
     Route: 048
     Dates: start: 20130911, end: 20171213
  3. ADIRO [Suspect]
     Active Substance: ASPIRIN
     Indication: PRODUCT USED FOR UNKNOWN INDICATION
     Dosage: UNK UNK, QD, 0-1-0
     Route: 048
     Dates: start: 20130911, end: 20171213
  4. AMOXICILINA + ACIDO CLAVULANICO ALTER [Concomitant]
     Dosage: UNK UNK, TID, 1-1-1
     Route: 048
     Dates: start: 20171203, end: 20171213

REACTIONS (2)
  - Upper gastrointestinal haemorrhage [Fatal]
  - Acute kidney injury [Fatal]

NARRATIVE: CASE EVENT DATE: 20171213
